FAERS Safety Report 6687225-X (Version None)
Quarter: 2010Q2

REPORT INFORMATION
  Report Type: 
  Country: None (occurrence: None)
  Receive Date: 20100419
  Receipt Date: 20091014
  Transmission Date: 20101027
  Serious: No
  Sender: FDA-Public Use
  Company Number: US-ABBOTT-09P-163-0603585-00

PATIENT
  Sex: Female

DRUGS (2)
  1. ZEMPLAR [Suspect]
     Indication: HYPERPARATHYROIDISM
     Route: 042
     Dates: start: 20090701
  2. ZEMPLAR [Suspect]
     Route: 042

REACTIONS (5)
  - DYSGEUSIA [None]
  - FEELING HOT [None]
  - MALAISE [None]
  - NAUSEA [None]
  - VOMITING [None]
